FAERS Safety Report 9366733 (Version 2)
Quarter: 2013Q3

REPORT INFORMATION
  Report Type: Report from Study
  Country: US (occurrence: US)
  Receive Date: 20130625
  Receipt Date: 20130725
  Transmission Date: 20140515
  Serious: Yes (Hospitalization)
  Sender: FDA-Public Use
  Company Number: US-ACTELION-A-US2013-80995

PATIENT
  Age: 66 Year
  Sex: Female

DRUGS (2)
  1. TRACLEER [Suspect]
     Indication: PULMONARY ARTERIAL HYPERTENSION
     Dosage: UNK
     Route: 048
  2. SILDENAFIL [Concomitant]
     Indication: PULMONARY ARTERIAL HYPERTENSION

REACTIONS (6)
  - Renal failure chronic [Recovering/Resolving]
  - Dialysis [Recovering/Resolving]
  - Chronic obstructive pulmonary disease [Recovering/Resolving]
  - Dyspnoea [Recovering/Resolving]
  - Fluid overload [Recovering/Resolving]
  - Cardiac failure congestive [Recovering/Resolving]
